FAERS Safety Report 7319407-8 (Version None)
Quarter: 2011Q1

REPORT INFORMATION
  Report Type: 
  Country: None (occurrence: None)
  Receive Date: 20110228
  Receipt Date: 20100308
  Transmission Date: 20110831
  Serious: No
  Sender: FDA-Public Use
  Company Number: A0848899A

PATIENT
  Age: 46 Year
  Sex: Female

DRUGS (3)
  1. LAMICTAL [Suspect]
     Indication: BIPOLAR DISORDER
     Route: 065
     Dates: start: 20100303
  2. HYDROCODONE BITARTRATE [Concomitant]
  3. KLONOPIN [Concomitant]

REACTIONS (14)
  - DIZZINESS [None]
  - BACK PAIN [None]
  - PYREXIA [None]
  - DRY MOUTH [None]
  - VISION BLURRED [None]
  - VOMITING [None]
  - TREMOR [None]
  - COORDINATION ABNORMAL [None]
  - NAUSEA [None]
  - ABDOMINAL PAIN [None]
  - DIPLOPIA [None]
  - SPEECH DISORDER [None]
  - HEADACHE [None]
  - AURA [None]
